FAERS Safety Report 5026997-7 (Version None)
Quarter: 2006Q2

REPORT INFORMATION
  Report Type: 
  Country: None (occurrence: None)
  Receive Date: 20060609
  Receipt Date: 20060530
  Transmission Date: 20061013
  Serious: Yes (Life-Threatening, Hospitalization, Other)
  Sender: FDA-Public Use
  Company Number: 2006063339

PATIENT
  Age: 14 Year
  Sex: Female

DRUGS (3)
  1. GENOTROPIN [Suspect]
     Indication: TURNER'S SYNDROME
     Dosage: 3 MG (3 MG 1 IN 1 D) SUBCUTANEOUS
     Route: 058
     Dates: start: 19960101
  2. ETHINYL ESTRADIOL TAB [Concomitant]
  3. NORETHISTERONE (NORETHISTERONE) [Concomitant]

REACTIONS (1)
  - HYPERTENSION [None]
